FAERS Safety Report 20438960 (Version 1)
Quarter: 2022Q1

REPORT INFORMATION
  Report Type: Spontaneous
  Country: US (occurrence: None)
  Receive Date: 20220204
  Receipt Date: 20220204
  Transmission Date: 20220423
  Serious: Yes (Life-Threatening, Hospitalization)
  Sender: FDA-Public Use
  Company Number: None

PATIENT
  Age: 45 Year
  Sex: Male

DRUGS (1)
  1. CEFAZOLIN [Suspect]
     Active Substance: CEFAZOLIN
     Indication: Antibiotic prophylaxis
     Dosage: OTHER FREQUENCY : ONCE;?
     Route: 042

REACTIONS (3)
  - Anaphylactic reaction [None]
  - Cardio-respiratory arrest [None]
  - Unresponsive to stimuli [None]

NARRATIVE: CASE EVENT DATE: 20210318
